FAERS Safety Report 16989866 (Version 3)
Quarter: 2019Q4

REPORT INFORMATION
  Report Type: Spontaneous
  Country: HR (occurrence: HR)
  Receive Date: 20191104
  Receipt Date: 20191108
  Transmission Date: 20200122
  Serious: Yes (Life-Threatening, Hospitalization, Other)
  Sender: FDA-Public Use
  Company Number: HR-PFIZER INC-2019474623

PATIENT
  Age: 88 Year
  Sex: Female

DRUGS (5)
  1. CONCOR [Interacting]
     Active Substance: BISOPROLOL FUMARATE
     Dosage: UNK
     Route: 048
  2. ELIQUIS [Suspect]
     Active Substance: APIXABAN
     Indication: CEREBROVASCULAR ACCIDENT PROPHYLAXIS
  3. CONCOR [Interacting]
     Active Substance: BISOPROLOL FUMARATE
     Indication: CARDIAC FAILURE CHRONIC
     Dosage: 37.5 MG, 1X/DAY
     Route: 048
     Dates: start: 201712
  4. ELIQUIS [Suspect]
     Active Substance: APIXABAN
     Indication: ATRIAL FLUTTER
     Dosage: 5 MG, 1X/DAY
     Route: 048
     Dates: start: 201712
  5. CORDARONE [Suspect]
     Active Substance: AMIODARONE HYDROCHLORIDE
     Indication: ATRIAL FLUTTER
     Dosage: 200 MG, 1X/DAY
     Route: 048
     Dates: start: 201712, end: 20190822

REACTIONS (6)
  - Drug interaction [Unknown]
  - Electrocardiogram PQ interval prolonged [Recovered/Resolved]
  - Chronic kidney disease [Unknown]
  - Microcytic anaemia [Recovering/Resolving]
  - Dementia [Unknown]
  - Bradycardia [Recovered/Resolved]

NARRATIVE: CASE EVENT DATE: 20190822
